FAERS Safety Report 9000626 (Version 2)
Quarter: 2013Q1

REPORT INFORMATION
  Report Type: Spontaneous
  Country: JP (occurrence: None)
  Receive Date: 20121226
  Receipt Date: 20130102
  Transmission Date: 20140127
  Serious: Yes (Life-Threatening, Hospitalization)
  Sender: FDA-Public Use
  Company Number: TPA2012A09462

PATIENT
  Age: 20 Year
  Sex: Male

DRUGS (7)
  1. FEBURIC (FEBUXOSTAT) [Suspect]
     Indication: HYPERURICAEMIA
     Dosage: (1 IN 1 D)
     Route: 048
     Dates: start: 20120808, end: 20121003
  2. PREDONINE [Suspect]
     Indication: IGA NEPHROPATHY
     Dosage: (15 MG, 1 IN 1 D)?
     Route: 048
     Dates: start: 20111214, end: 20121003
  3. TAKEPRON (LANSOPRAZOLE) [Concomitant]
  4. FOSAMAC (ALENDRONATE SODIUM) [Concomitant]
  5. BAKTAR(SULFAMETHOXAZOLE, TRIMETHOPRIM) [Concomitant]
  6. DIOVAN(VALSARTAN) [Concomitant]
  7. POPIYODON(POVIDONE-IODINE) [Concomitant]

REACTIONS (2)
  - Diabetic ketoacidosis [None]
  - Hyperglycaemia [None]
